FAERS Safety Report 6097656-7 (Version None)
Quarter: 2009Q1

REPORT INFORMATION
  Report Type: 
  Country: None (occurrence: None)
  Receive Date: 20090227
  Receipt Date: 20090218
  Transmission Date: 20090719
  Serious: Yes (Other)
  Sender: FDA-Public Use
  Company Number: US-ELI_LILLY_AND_COMPANY-US200902004525

PATIENT
  Sex: Female

DRUGS (11)
  1. CYMBALTA [Suspect]
     Indication: DEPRESSION
     Dosage: 30 MG, DAILY (1/D)
     Route: 048
     Dates: start: 20081223, end: 20081230
  2. CYMBALTA [Suspect]
     Dosage: 60 MG, DAILY (1/D)
     Route: 048
     Dates: start: 20081231, end: 20090210
  3. DARVOCET [Concomitant]
     Dosage: UNK, EVERY 4 HRS
     Route: 048
  4. DARVOCET [Concomitant]
     Dosage: UNK, EVERY 6 HRS
     Route: 048
  5. XANAX [Concomitant]
     Dosage: 0.5 MG, 3/D
     Route: 048
  6. XANAX [Concomitant]
     Dosage: 1 MG, EACH EVENING
     Route: 048
  7. DILANTIN [Concomitant]
     Dosage: 100 MG, 3/D
     Route: 048
  8. DILANTIN [Concomitant]
     Dosage: 600 MG, OTHER
     Route: 048
     Dates: start: 20090210, end: 20090210
  9. CELEBREX [Concomitant]
     Dosage: 200 MG, DAILY (1/D)
     Route: 048
     Dates: end: 20081113
  10. ALLEGRA [Concomitant]
     Dosage: 180 MG, DAILY (1/D)
     Route: 048
  11. VALTREX [Concomitant]
     Dosage: 1 G, 3/D
     Route: 048

REACTIONS (3)
  - CONVULSION [None]
  - HEADACHE [None]
  - LOSS OF CONSCIOUSNESS [None]
